FAERS Safety Report 7372835 (Version 4)
Quarter: 2012Q4

REPORT INFORMATION
  Report Type: 
  Country: US (occurrence: US)
  Receive Date: 20100430
  Receipt Date: 20121228
  Transmission Date: 20130627
  Serious: Yes (Other)
  Sender: FDA-Public Use
  Company Number: US-ASTRAZENECA-2010SE09132

PATIENT
  Age: 49 Year
  Sex: Female

DRUGS (15)
  1. NEXIUM [Suspect]
     Indication: GASTROOESOPHAGEAL REFLUX DISEASE
     Route: 048
     Dates: start: 2000
  2. PRILOSEC OTC [Suspect]
     Indication: GASTROOESOPHAGEAL REFLUX DISEASE
     Route: 048
     Dates: start: 2010
  3. CRESTOR [Suspect]
     Route: 048
  4. OMEPRAZOLE [Suspect]
     Route: 065
  5. CYTELLIN [Suspect]
     Route: 065
  6. MORPHINE [Concomitant]
  7. XANAX [Concomitant]
  8. POTASSIUM [Concomitant]
  9. EFFEXOR [Concomitant]
  10. KLONOPIN [Concomitant]
  11. LASIX [Concomitant]
  12. OXYCONTIN [Concomitant]
  13. ALPREZALINE [Concomitant]
  14. PROPRANOLOL [Concomitant]
  15. 20 MEDICATIONS [Concomitant]

REACTIONS (16)
  - Spinal fracture [Unknown]
  - Petit mal epilepsy [Unknown]
  - Cerebral haemorrhage [Unknown]
  - Grand mal convulsion [Unknown]
  - Autoimmune thyroiditis [Unknown]
  - Blood triglycerides increased [Unknown]
  - Osteoporosis [Not Recovered/Not Resolved]
  - Dyspepsia [Unknown]
  - Mitral valve prolapse [Unknown]
  - Thyroid disorder [Unknown]
  - Central nervous system lesion [Unknown]
  - Sleep disorder due to a general medical condition [Unknown]
  - Road traffic accident [Unknown]
  - Dysuria [Unknown]
  - Drug ineffective [Unknown]
  - Drug dose omission [Unknown]
